FAERS Safety Report 9007397 (Version 2)
Quarter: 2013Q1

REPORT INFORMATION
  Report Type: Spontaneous
  Country: US (occurrence: US)
  Receive Date: 20130110
  Receipt Date: 20130222
  Transmission Date: 20140127
  Serious: No
  Sender: FDA-Public Use
  Company Number: US-009507513-1301USA003727

PATIENT
  Age: 61 Year
  Sex: Male
  Weight: 92.97 kg

DRUGS (4)
  1. VICTRELIS [Suspect]
     Dosage: 200 MG (TAKE 4 CAPSULES EVERY 8 HOURS)
     Route: 048
  2. PEGASYS [Suspect]
  3. RIBAVIRIN [Suspect]
     Route: 048
  4. NEUPOGEN [Concomitant]
     Route: 058

REACTIONS (4)
  - White blood cell count decreased [Unknown]
  - Lymphatic disorder [Unknown]
  - Haematocrit decreased [Unknown]
  - Haemoglobin increased [Unknown]
